FAERS Safety Report 7518110-9 (Version None)
Quarter: 2011Q2

REPORT INFORMATION
  Report Type: 
  Country: None (occurrence: None)
  Receive Date: 20110531
  Receipt Date: 20110531
  Transmission Date: 20111010
  Serious: Yes (Death)
  Sender: FDA-Public Use
  Company Number: None

PATIENT
  Age: 71 Year
  Sex: Male

DRUGS (10)
  1. OMEPRAZOLE [Concomitant]
  2. ATENOLOL [Concomitant]
  3. SIMVASTATIN [Concomitant]
  4. MORPHINE [Concomitant]
  5. PROCHLORPERAZINE TAB [Concomitant]
  6. REVLIMID [Suspect]
     Indication: MULTIPLE MYELOMA
     Dosage: 25 MG DAILY X21D/23D ORALLY
     Route: 048
     Dates: start: 20090801, end: 20110101
  7. BISACODYL [Concomitant]
  8. LORAZEPAM [Concomitant]
  9. HYDOCODONE/APAP [Concomitant]
  10. LOSARTAN POTASSIUM [Concomitant]

REACTIONS (2)
  - PANCYTOPENIA [None]
  - REFRACTORY ANAEMIA WITH AN EXCESS OF BLASTS [None]
